FAERS Safety Report 25157840 (Version 1)
Quarter: 2025Q2

REPORT INFORMATION
  Report Type: Report from Study
  Country: JP (occurrence: JP)
  Receive Date: 20250403
  Receipt Date: 20250403
  Transmission Date: 20250716
  Serious: Yes (Hospitalization)
  Sender: ABBVIE
  Company Number: JP-ABBVIE-6207595

PATIENT

DRUGS (2)
  1. UPADACITINIB [Suspect]
     Active Substance: UPADACITINIB
     Indication: Colitis ulcerative
     Dosage: FOR MORE THAN OR EQUAL TO 8 WEEKS (UP TO 16 WEEKS) AS INDUCTION THERAPY
     Route: 048
  2. UPADACITINIB [Suspect]
     Active Substance: UPADACITINIB
     Indication: Colitis ulcerative
     Dosage: THE DOSE WAS REDUCED TO 15 OR 30 MG DAILY AS MAINTENANCE THERAPY
     Route: 048

REACTIONS (1)
  - Urinary tract infection [Unknown]
